FAERS Safety Report 16920431 (Version 1)
Quarter: 2019Q4

REPORT INFORMATION
  Report Type: Spontaneous
  Country: CH (occurrence: CH)
  Receive Date: 20191015
  Receipt Date: 20191015
  Transmission Date: 20200122
  Serious: Yes (Hospitalization, Other)
  Sender: FDA-Public Use
  Company Number: CH-VISTAPHARM, INC.-VER201909-000980

PATIENT
  Age: 6 Week
  Sex: Male
  Weight: 4.8 kg

DRUGS (2)
  1. MORPHINE [Suspect]
     Active Substance: MORPHINE
     Indication: PAIN
     Dosage: 5 MG/KG VIA GASTRIC DRAIN TUBE
  2. NALBUPHINE [Concomitant]
     Active Substance: NALBUPHINE
     Indication: NERVOUS SYSTEM DISORDER
     Dosage: 0.1 MG/KG/H FOR 48 HOURS
     Route: 042

REACTIONS (8)
  - Opisthotonus [Recovered/Resolved]
  - Accidental overdose [Recovered/Resolved]
  - Somnolence [Recovered/Resolved]
  - Myoclonus [Recovered/Resolved]
  - Nervous system disorder [Recovered/Resolved]
  - Product prescribing error [Unknown]
  - Restlessness [Recovered/Resolved]
  - Bradypnoea [Recovered/Resolved]
